FAERS Safety Report 4399690-1 (Version None)
Quarter: 2004Q3

REPORT INFORMATION
  Report Type: 
  Country: None (occurrence: None)
  Receive Date: 20040713
  Receipt Date: 20040706
  Transmission Date: 20050211
  Serious: Yes (Hospitalization)
  Sender: FDA-Public Use
  Company Number: S04-USA-03250-01

PATIENT
  Age: 77 Year
  Sex: Female
  Weight: 62.5964 kg

DRUGS (12)
  1. NAMENDA [Suspect]
     Indication: DEMENTIA ALZHEIMER'S TYPE
     Dosage: 5 MG QD PO
     Route: 048
     Dates: start: 20040525, end: 20040602
  2. COUMADIN [Suspect]
     Indication: ANTICOAGULANT THERAPY
     Dosage: 5 MG QD
  3. DARVOCET [Concomitant]
  4. ARICEPT [Concomitant]
  5. TYLOX [Concomitant]
  6. MIACALCIN [Concomitant]
  7. CLONIDINE HCL [Concomitant]
  8. ATIVAN [Concomitant]
  9. ELAVIL [Concomitant]
  10. DYAZIDE [Concomitant]
  11. PAXIL CR [Concomitant]
  12. TOPROL-XL [Concomitant]

REACTIONS (7)
  - ANTICOAGULATION DRUG LEVEL ABOVE THERAPEUTIC [None]
  - DRUG INTERACTION [None]
  - EXCORIATION [None]
  - FALL [None]
  - HAEMORRHAGE [None]
  - INTERNATIONAL NORMALISED RATIO INCREASED [None]
  - PROTHROMBIN TIME PROLONGED [None]
